FAERS Safety Report 12371508 (Version 2)
Quarter: 2016Q2

REPORT INFORMATION
  Report Type: Report from Study
  Country: JP (occurrence: JP)
  Receive Date: 20160516
  Receipt Date: 20160613
  Transmission Date: 20160815
  Serious: Yes (Other)
  Sender: FDA-Public Use
  Company Number: JP-MYLANLABS-2016M1019892

PATIENT

DRUGS (10)
  1. OXALIPLATIN. [Suspect]
     Active Substance: OXALIPLATIN
     Indication: RECTAL CANCER
     Dosage: 85 MG/M 2 AS A 2 HOUR INFUSION (MFOLFOX; 6 CYCLES+6 CYCLES)
     Route: 041
  2. LEVOFOLINATE [Suspect]
     Active Substance: LEVOLEUCOVORIN CALCIUM
     Indication: RECTAL CANCER
     Dosage: 200MG/M2/2 HOURS IN PRINCIPLE DELIVERED ONCE EVERY 2 WEEKS
     Route: 041
  3. FOLINIC ACID [Suspect]
     Active Substance: LEUCOVORIN
     Dosage: 12 CYCLES OF SIMPLIFIED LV5FU2; 200 MG/M 2 , A 2 HOUR INFUSION
     Route: 041
  4. BEVACIZUMAB [Suspect]
     Active Substance: BEVACIZUMAB
     Indication: RECTAL CANCER
     Dosage: 30 MINUTE INFUSION 5 MG/KG ON DAY 1, EVERY 2 WEEKS; 6 CYCLES WITH MFOLFOX
     Route: 041
  5. FLUOROURACIL. [Suspect]
     Active Substance: FLUOROURACIL
     Dosage: 12 CYCLES OF SIMPLIFIED LV5FU2; 400 MG/M 2 BOLUS
     Route: 040
  6. FLUOROURACIL. [Suspect]
     Active Substance: FLUOROURACIL
     Dosage: 12 CYCLES OF SIMPLIFIED LV5FU2; 2400 MG/M 2 46 HOUR INFUSION
     Route: 041
  7. FOLINIC ACID [Suspect]
     Active Substance: LEUCOVORIN
     Indication: RECTAL CANCER
     Dosage: 200 MG/M 2, A 2 HOUR INFUSION (MFOLFOX; 6 CYCLES+6 CYCLES)
     Route: 041
  8. BEVACIZUMAB [Suspect]
     Active Substance: BEVACIZUMAB
     Dosage: 12 CYCLES OF SIMPLIFIED LV5FU2 WITH 30 MINUTE INFUSION BEVACIZUMAB; 5 MG/KG ON DAY 1, EVERY 2 WEEKS
     Route: 041
  9. FLUOROURACIL. [Suspect]
     Active Substance: FLUOROURACIL
     Indication: RECTAL CANCER
     Dosage: 400 MG/M 2 BOLUS AND 46 HOUR INFUSION OF 2400 MG/M 2 (MFOLFOX; MFOLFOX; 6 CYCLES+6 CYCLES)
     Route: 040
  10. FLUOROURACIL. [Suspect]
     Active Substance: FLUOROURACIL
     Dosage: 46 HOUR INFUSION OF 2400 MG/M 2 (MFOLFOX; 6 CYCLES+6 CYCLES)
     Route: 041

REACTIONS (2)
  - Neurotoxicity [Unknown]
  - Pelvic abscess [Unknown]
